FAERS Safety Report 12518463 (Version 1)
Quarter: 2016Q2

REPORT INFORMATION
  Report Type: Spontaneous
  Country: CN (occurrence: CN)
  Receive Date: 20160630
  Receipt Date: 20160630
  Transmission Date: 20160815
  Serious: Yes (Hospitalization, Other)
  Sender: FDA-Public Use
  Company Number: CN-BAXTER-2016BAX033671

PATIENT
  Age: 48 Year
  Sex: Female
  Weight: 44 kg

DRUGS (6)
  1. 0.9% SODIUM CHLORIDE INJECTION [Suspect]
     Active Substance: SODIUM CHLORIDE
     Indication: INTERVERTEBRAL DISC PROTRUSION
     Route: 041
     Dates: start: 20151106, end: 20151106
  2. 0.9% SODIUM CHLORIDE INJECTION [Suspect]
     Active Substance: SODIUM CHLORIDE
     Indication: OFF LABEL USE
  3. 20% MANNITOL INJECTION [Suspect]
     Active Substance: MANNITOL
     Indication: INTERVERTEBRAL DISC PROTRUSION
     Route: 041
     Dates: start: 20151106, end: 20151106
  4. 20% MANNITOL INJECTION [Suspect]
     Active Substance: MANNITOL
     Indication: CERVICAL MYELOPATHY
     Dosage: ABOUT 75 ML OUT OF SECOND BOTTLE
     Route: 041
     Dates: start: 20151106, end: 20151106
  5. DANSHEN [Suspect]
     Active Substance: HERBALS
     Indication: INTERVERTEBRAL DISC PROTRUSION
     Route: 041
     Dates: start: 20151106, end: 20151106
  6. 20% MANNITOL INJECTION [Suspect]
     Active Substance: MANNITOL
     Indication: OFF LABEL USE

REACTIONS (4)
  - Musculoskeletal discomfort [Recovering/Resolving]
  - Hypoaesthesia [Recovering/Resolving]
  - Palpitations [Recovering/Resolving]
  - Hypokinesia [Recovering/Resolving]

NARRATIVE: CASE EVENT DATE: 20151106
